FAERS Safety Report 21010481 (Version 1)
Quarter: 2022Q2

REPORT INFORMATION
  Report Type: Spontaneous
  Country: US (occurrence: US)
  Receive Date: 20220627
  Receipt Date: 20220627
  Transmission Date: 20220721
  Serious: Yes (Other)
  Sender: FDA-Public Use
  Company Number: US-ALKERMES INC.-ALK-2022-002988

PATIENT

DRUGS (1)
  1. VIVITROL [Suspect]
     Active Substance: NALTREXONE
     Indication: Product used for unknown indication
     Dosage: 380 MILLIGRAM, QMO
     Route: 030

REACTIONS (3)
  - Hip arthroplasty [Recovered/Resolved]
  - Injection site reaction [Not Recovered/Not Resolved]
  - Injection site discomfort [Not Recovered/Not Resolved]
